FAERS Safety Report 8736865 (Version 2)
Quarter: 2012Q4

REPORT INFORMATION
  Report Type: 
  Country: FR (occurrence: FR)
  Receive Date: 20120822
  Receipt Date: 20120831
  Transmission Date: 20130627
  Serious: Yes (Hospitalization)
  Sender: FDA-Public Use
  Company Number: FR-PFIZER INC-2012201658

PATIENT
  Age: 83 Year
  Sex: Female

DRUGS (11)
  1. TAHOR [Suspect]
     Indication: HYPERCHOLESTEROLAEMIA
     Dosage: 10 mg, 1x/day
     Route: 048
  2. METFORMIN HYDROCHLORIDE\SITAGLIPTIN [Suspect]
     Indication: TYPE 2 DIABETES MELLITUS
     Dosage: 1 DF, 2x/day
     Route: 048
     Dates: start: 201201, end: 20120723
  3. COAPROVEL [Suspect]
     Indication: HYPERTENSION
     Dosage: 300mg/25mg, 1x/day
     Route: 048
  4. LASILIX [Suspect]
     Indication: HYPERTENSION
     Dosage: 40 mg, 1x/day
     Route: 048
  5. PREVISCAN [Suspect]
     Indication: ATRIAL FIBRILLATION
     Dosage: 0.75 DF, 2x/day
     Route: 048
     Dates: start: 20120622
  6. AMAREL [Suspect]
     Indication: TYPE 2 DIABETES MELLITUS
     Dosage: 1 mg, 1x/day
     Route: 048
  7. LAROXYL [Concomitant]
  8. NEBILOX [Concomitant]
  9. SMECTA ^DAE WOONG^ [Concomitant]
  10. METEOXANE [Concomitant]
  11. CELLUVISC [Concomitant]

REACTIONS (7)
  - Pancreatitis [Recovering/Resolving]
  - Renal failure acute [Recovering/Resolving]
  - Toxicity to various agents [Recovering/Resolving]
  - Cholestasis [Recovering/Resolving]
  - Blood glucose decreased [Unknown]
  - Renal failure chronic [Unknown]
  - Escherichia infection [Unknown]
